FAERS Safety Report 8536185-5 (Version None)
Quarter: 2012Q3

REPORT INFORMATION
  Report Type: 
  Country: None (occurrence: None)
  Receive Date: 20120725
  Receipt Date: 20120720
  Transmission Date: 20120928
  Serious: Yes (Life-Threatening, Hospitalization, Other)
  Sender: FDA-Public Use
  Company Number: JP-AMGEN-JPNCT2012031713

PATIENT
  Age: 1 Year
  Sex: Male
  Weight: 18 kg

DRUGS (37)
  1. ROMIPLOSTIM [Suspect]
     Indication: IDIOPATHIC THROMBOCYTOPENIC PURPURA
     Dosage: 1 MG/KG, QWK
     Route: 058
     Dates: start: 20110601, end: 20110608
  2. ROMIPLOSTIM [Suspect]
     Dosage: 2 MG/KG, QWK
     Route: 058
     Dates: start: 20110615, end: 20110615
  3. ROMIPLOSTIM [Suspect]
     Dosage: 3 MG/KG, QWK
     Route: 058
     Dates: start: 20110624, end: 20120624
  4. FUNGUARD [Suspect]
     Dosage: UNCERTAINTY
     Route: 065
  5. PREDNISOLONE [Concomitant]
     Indication: IDIOPATHIC THROMBOCYTOPENIC PURPURA
     Route: 048
     Dates: start: 20110523, end: 20110524
  6. PREDNISOLONE [Concomitant]
     Route: 048
     Dates: start: 20110529, end: 20110530
  7. FUNGIZONE [Concomitant]
     Indication: PROPHYLAXIS
     Dosage: UNK
  8. ROMIPLOSTIM [Suspect]
     Dosage: 5 MG/KG, QWK
     Route: 058
     Dates: start: 20110809, end: 20110809
  9. DECADRON [Suspect]
     Indication: IDIOPATHIC THROMBOCYTOPENIC PURPURA
     Dosage: 12 MG, UNK
     Route: 048
     Dates: start: 20110520, end: 20110617
  10. PREDNISOLONE [Concomitant]
     Route: 048
     Dates: start: 20110609, end: 20110611
  11. ROMIPLOSTIM [Suspect]
     Dosage: 5 MG/KG, QWK
     Route: 058
     Dates: start: 20110721, end: 20110806
  12. ROMIPLOSTIM [Suspect]
     Dosage: 10 MG/KG, QWK
     Route: 058
     Dates: start: 20111017
  13. PREDNISOLONE [Concomitant]
     Route: 048
     Dates: start: 20110603, end: 20110605
  14. PREDNISOLONE [Concomitant]
     Route: 048
     Dates: start: 20110614, end: 20110615
  15. FAMOTIDINE [Concomitant]
     Indication: PROPHYLAXIS
     Dosage: UNK
  16. ROMIPLOSTIM [Suspect]
     Dosage: 9 MG/KG, QWK
     Route: 058
     Dates: start: 20110908, end: 20110908
  17. DANAZOL [Concomitant]
     Indication: IDIOPATHIC THROMBOCYTOPENIC PURPURA
     Route: 048
     Dates: start: 20110513, end: 20110616
  18. DANAZOL [Concomitant]
     Route: 048
     Dates: start: 20110617, end: 20110618
  19. BACTRIM [Suspect]
     Dosage: UNK
     Route: 065
  20. ZOSYN [Suspect]
     Dosage: UNK
     Route: 041
  21. AMBISOME [Suspect]
     Dosage: UNCERTAINTY
     Route: 065
  22. IMMUNE GLOBULIN (HUMAN) [Concomitant]
     Dosage: UNK
  23. CEFAZOLIN SODIUM [Concomitant]
     Indication: PROPHYLAXIS
     Dosage: UNK
  24. ROMIPLOSTIM [Suspect]
     Dosage: 4 MG/KG, QWK
     Route: 058
     Dates: start: 20110711, end: 20110711
  25. ROMIPLOSTIM [Suspect]
     Dosage: 8 MG/KG, QWK
     Route: 058
     Dates: start: 20110901, end: 20110901
  26. CYCLOSPORINE [Suspect]
     Dosage: UNCERTAINTY
     Route: 065
  27. PREDNISOLONE [Concomitant]
     Dosage: UNCERTAINTY
     Route: 048
  28. PREDNISOLONE [Concomitant]
     Route: 048
     Dates: start: 20110525, end: 20110525
  29. ROMIPLOSTIM [Suspect]
     Dosage: 3 MG/KG, QWK
     Route: 058
     Dates: start: 20120621, end: 20120621
  30. CELLCEPT [Suspect]
     Dosage: UNCERTAINTY
     Route: 048
  31. ROMIPLOSTIM [Suspect]
     Dosage: 6 MG/KG, QWK
     Route: 058
     Dates: start: 20110816, end: 20110816
  32. ROMIPLOSTIM [Suspect]
     Dosage: 7 MG/KG, QWK
     Route: 058
     Dates: start: 20110824, end: 20110824
  33. ROMIPLOSTIM [Suspect]
     Dosage: 10 MG/KG, QWK
     Route: 058
     Dates: start: 20110915, end: 20111013
  34. RITUXAN [Suspect]
  35. MEROPENEM [Suspect]
     Indication: PROPHYLAXIS
     Dosage: UNK
     Route: 041
  36. PREDNISOLONE [Concomitant]
     Dosage: UNK
  37. PREDNISOLONE [Concomitant]
     Route: 048
     Dates: start: 20110618, end: 20110619

REACTIONS (14)
  - PNEUMONIA CYTOMEGALOVIRAL [None]
  - PNEUMONIA BACTERIAL [None]
  - LIVER DISORDER [None]
  - MALNUTRITION [None]
  - PNEUMOCYSTIS JIROVECI PNEUMONIA [None]
  - HYPOKALAEMIA [None]
  - CLOSTRIDIUM COLITIS [None]
  - DISSEMINATED INTRAVASCULAR COAGULATION [None]
  - PNEUMONIA FUNGAL [None]
  - PANCREATITIS [None]
  - ELECTROCARDIOGRAM QT PROLONGED [None]
  - RENAL DISORDER [None]
  - ACUTE RESPIRATORY DISTRESS SYNDROME [None]
  - GASTRIC ULCER [None]
